FAERS Safety Report 19866183 (Version 1)
Quarter: 2021Q3

REPORT INFORMATION
  Report Type: Spontaneous
  Country: CN (occurrence: CN)
  Receive Date: 20210922
  Receipt Date: 20210922
  Transmission Date: 20211014
  Serious: Yes (Hospitalization)
  Sender: FDA-Public Use
  Company Number: CN-009507513-2109CHN004456

PATIENT
  Age: 36 Year
  Sex: Male
  Weight: 47.5 kg

DRUGS (2)
  1. MEROPENEM. [Suspect]
     Active Substance: MEROPENEM
     Indication: PNEUMONIA
     Dosage: 1 GRAM, BID
     Route: 041
     Dates: start: 20210730, end: 20210731
  2. TIENAM [Suspect]
     Active Substance: CILASTATIN SODIUM\IMIPENEM
     Indication: PNEUMONIA
     Dosage: 0.5 GRAM, TID
     Route: 041
     Dates: start: 20210731, end: 20210806

REACTIONS (3)
  - Henoch-Schonlein purpura [Recovering/Resolving]
  - Pyrexia [Unknown]
  - Hepatic function abnormal [Recovering/Resolving]

NARRATIVE: CASE EVENT DATE: 20210806
